FAERS Safety Report 5120992-5 (Version None)
Quarter: 2006Q4

REPORT INFORMATION
  Report Type: 
  Country: None (occurrence: None)
  Receive Date: 20061005
  Receipt Date: 20060922
  Transmission Date: 20070319
  Serious: Yes (Other)
  Sender: FDA-Public Use
  Company Number: PHBS2006IN15008

PATIENT
  Age: 45 Year
  Sex: Female

DRUGS (1)
  1. PILOCARPINE (NVO) [Suspect]

REACTIONS (8)
  - ANGLE CLOSURE GLAUCOMA [None]
  - CONDITION AGGRAVATED [None]
  - EYE PAIN [None]
  - INTRAOCULAR LENS EXTRACTION [None]
  - INTRAOCULAR PRESSURE INCREASED [None]
  - IRIS ATROPHY [None]
  - VISUAL ACUITY REDUCED [None]
  - VITRECTOMY [None]
